FAERS Safety Report 15035832 (Version 2)
Quarter: 2018Q3

REPORT INFORMATION
  Report Type: Spontaneous
  Country: IN (occurrence: IN)
  Receive Date: 20180620
  Receipt Date: 20180725
  Transmission Date: 20181010
  Serious: Yes (Death, Hospitalization)
  Sender: FDA-Public Use
  Company Number: IN-PFIZER INC-2018247739

PATIENT
  Age: 40 Year
  Sex: Male

DRUGS (1)
  1. CRIZALK [Suspect]
     Active Substance: CRIZOTINIB
     Indication: NON-SMALL CELL LUNG CANCER
     Dosage: 250 MG, 2X/DAY
     Route: 048
     Dates: start: 20151209, end: 20180528

REACTIONS (4)
  - Anxiety [Unknown]
  - Multiple organ dysfunction syndrome [Fatal]
  - Dyspnoea [Fatal]
  - Pneumothorax [Fatal]

NARRATIVE: CASE EVENT DATE: 2018
